FAERS Safety Report 6740008-4 (Version None)
Quarter: 2010Q2

REPORT INFORMATION
  Report Type: 
  Country: None (occurrence: None)
  Receive Date: 20100525
  Receipt Date: 20100513
  Transmission Date: 20101027
  Serious: Yes (Other)
  Sender: FDA-Public Use
  Company Number: US-GENZYME-THYM-1001517

PATIENT

DRUGS (4)
  1. THYMOGLOBULIN [Suspect]
     Indication: PROPHYLAXIS AGAINST TRANSPLANT REJECTION
     Dosage: 1.5 MG/KG, QOD
     Route: 042
     Dates: start: 20090919, end: 20090921
  2. THYMOGLOBULIN [Suspect]
     Dosage: 1.5 MG/KG, QD
     Route: 042
     Dates: start: 20090921, end: 20090921
  3. MYCOPHENOLATE MOFETIL [Concomitant]
     Indication: PROPHYLAXIS AGAINST TRANSPLANT REJECTION
     Dosage: 1000 MG, BID
  4. CORTICOSTEROIDS [Concomitant]
     Indication: PROPHYLAXIS AGAINST TRANSPLANT REJECTION
     Dosage: UNK
     Route: 065

REACTIONS (1)
  - LIVER TRANSPLANT REJECTION [None]
